FAERS Safety Report 10550848 (Version 1)
Quarter: 2014Q4

REPORT INFORMATION
  Report Type: Spontaneous
  Country: US (occurrence: None)
  Receive Date: 20141028
  Receipt Date: 20141028
  Transmission Date: 20150529
  Serious: Yes (Death, Life-Threatening, Hospitalization)
  Sender: FDA-Public Use
  Company Number: None

PATIENT
  Age: 66 Year
  Sex: Female

DRUGS (1)
  1. EOVIST [Suspect]
     Active Substance: GADOXETATE DISODIUM
     Route: 042

REACTIONS (4)
  - Respiratory arrest [None]
  - Pulse absent [None]
  - Dyspnoea [None]
  - Cyanosis [None]

NARRATIVE: CASE EVENT DATE: 20140828
